FAERS Safety Report 5449921-1 (Version None)
Quarter: 2007Q3

REPORT INFORMATION
  Report Type: 
  Country: None (occurrence: None)
  Receive Date: 20070910
  Receipt Date: 20070910
  Transmission Date: 20080115
  Serious: No
  Sender: FDA-Public Use
  Company Number: None

PATIENT
  Age: 37 Year
  Sex: Female
  Weight: 63.5036 kg

DRUGS (3)
  1. BUPROPION HCL [Suspect]
     Indication: SMOKING CESSATION THERAPY
     Dosage: 1 TABLET PER DAY PO
     Route: 048
     Dates: start: 20070215, end: 20070908
  2. ZYBAN [Suspect]
  3. WELLBUTRIN [Suspect]

REACTIONS (5)
  - DISTURBANCE IN ATTENTION [None]
  - DRY MOUTH [None]
  - INSOMNIA [None]
  - NERVOUSNESS [None]
  - THERAPEUTIC RESPONSE UNEXPECTED WITH DRUG SUBSTITUTION [None]
